FAERS Safety Report 5123138-2 (Version None)
Quarter: 2006Q4

REPORT INFORMATION
  Report Type: 
  Country: None (occurrence: None)
  Receive Date: 20061005
  Receipt Date: 20060925
  Transmission Date: 20070319
  Serious: Yes (Hospitalization)
  Sender: FDA-Public Use
  Company Number: 2006EN000162

PATIENT
  Age: 36 Year
  Sex: Male
  Weight: 88 kg

DRUGS (2)
  1. ABELCET [Suspect]
     Indication: MENINGITIS
     Dosage: 450 MG; QD; IV
     Route: 042
     Dates: start: 20060909
  2. FLUCONAZOLE [Concomitant]

REACTIONS (3)
  - CATHETER RELATED COMPLICATION [None]
  - INFUSION SITE ERYTHEMA [None]
  - INFUSION SITE SWELLING [None]
